FAERS Safety Report 17571346 (Version 3)
Quarter: 2020Q2

REPORT INFORMATION
  Report Type: Spontaneous
  Country: US (occurrence: US)
  Receive Date: 20200323
  Receipt Date: 20200423
  Transmission Date: 20200713
  Serious: Yes (Other)
  Sender: FDA-Public Use
  Company Number: US-PFIZER INC-2020122323

PATIENT
  Age: 72 Year
  Sex: Female
  Weight: 58.97 kg

DRUGS (6)
  1. XELJANZ [Suspect]
     Active Substance: TOFACITINIB CITRATE
     Indication: RHEUMATOID ARTHRITIS
     Dosage: 5 MG, 2X/DAY
     Dates: start: 20200305
  2. PROLIA [Concomitant]
     Active Substance: DENOSUMAB
     Indication: OSTEOPOROSIS
     Dosage: UNK (TWICE A YEAR EVERY 6 MONTHS)
     Dates: start: 20200409
  3. METHOTREXATE. [Concomitant]
     Active Substance: METHOTREXATE
     Dosage: 8 DF, WEEKLY
  4. PREDNISONE. [Concomitant]
     Active Substance: PREDNISONE
     Dosage: 7.5 MG (5 MG IN THE MORNING AND 2.5 MG AT NIGHT)
  5. PREDNISONE. [Concomitant]
     Active Substance: PREDNISONE
     Dosage: 5 MG
     Dates: start: 20200409
  6. METHOTREXATE. [Concomitant]
     Active Substance: METHOTREXATE
     Dosage: 4 DF
     Dates: start: 201901

REACTIONS (3)
  - Immunosuppression [Unknown]
  - Chronic obstructive pulmonary disease [Unknown]
  - Therapeutic product effect decreased [Unknown]

NARRATIVE: CASE EVENT DATE: 202003
